FAERS Safety Report 5502832-5 (Version None)
Quarter: 2007Q4

REPORT INFORMATION
  Report Type: 
  Country: None (occurrence: None)
  Receive Date: 20071031
  Receipt Date: 20071019
  Transmission Date: 20080405
  Serious: Yes (Other)
  Sender: FDA-Public Use
  Company Number: SE-AMGEN-UK249407

PATIENT
  Sex: Male

DRUGS (3)
  1. VECTIBIX [Suspect]
     Indication: COLORECTAL CANCER
     Dates: start: 20070501
  2. FLUOROURACIL [Concomitant]
  3. IRINOTECAN HCL [Concomitant]

REACTIONS (5)
  - ARTHRITIS [None]
  - METASTASES TO LUNG [None]
  - METASTASES TO NECK [None]
  - RASH [None]
  - SKIN FISSURES [None]
